FAERS Safety Report 8450891-2 (Version None)
Quarter: 2012Q2

REPORT INFORMATION
  Report Type: 
  Country: None (occurrence: None)
  Receive Date: 20120620
  Receipt Date: 20120610
  Transmission Date: 20120825
  Serious: Yes (Other)
  Sender: FDA-Public Use
  Company Number: GB-JNJFOC-20120605436

PATIENT
  Sex: Female

DRUGS (2)
  1. LOPERAMIDE HCL [Suspect]
     Route: 048
  2. LOPERAMIDE HCL [Suspect]
     Indication: IRRITABLE BOWEL SYNDROME
     Route: 048

REACTIONS (1)
  - ANGINA PECTORIS [None]
